FAERS Safety Report 9832270 (Version 2)
Quarter: 2014Q1

REPORT INFORMATION
  Report Type: Spontaneous
  Country: FI (occurrence: FI)
  Receive Date: 20140121
  Receipt Date: 20140221
  Transmission Date: 20141002
  Serious: Yes (Other)
  Sender: FDA-Public Use
  Company Number: FI-BRISTOL-MYERS SQUIBB COMPANY-19983998

PATIENT
  Age: 53 Year
  Sex: Male

DRUGS (6)
  1. FORXIGA [Suspect]
     Indication: DIABETES MELLITUS
     Dates: start: 20131101, end: 20131217
  2. DIFORMIN [Concomitant]
     Indication: DIABETES MELLITUS
     Dosage: 500MG, MODIFIED-RELEASE FILM-COATED TABLET
     Route: 048
  3. JANUVIA [Concomitant]
     Indication: DIABETES MELLITUS
     Dosage: FILM-COATED TABLET
  4. PRIMASPAN [Concomitant]
     Dosage: GASTRO-RESISTANT TABLET
     Route: 048
  5. CARDACE [Concomitant]
     Indication: HYPERTENSION
     Route: 048
  6. ROSUVASTATIN [Concomitant]
     Indication: HYPERCHOLESTEROLAEMIA

REACTIONS (2)
  - Gout [Recovering/Resolving]
  - Microalbuminuria [Recovered/Resolved]
